FAERS Safety Report 20024253 (Version 1)
Quarter: 2021Q4

REPORT INFORMATION
  Report Type: Spontaneous
  Country: US (occurrence: US)
  Receive Date: 20211102
  Receipt Date: 20211102
  Transmission Date: 20220303
  Serious: Yes (Hospitalization, Other)
  Sender: FDA-Public Use
  Company Number: US-BEH-2021137374

PATIENT
  Sex: Female

DRUGS (1)
  1. HIZENTRA [Suspect]
     Active Substance: HUMAN IMMUNOGLOBULIN G
     Indication: Immunodeficiency
     Dosage: 25 GRAM, QOW, VIA FREEDOM PUMP
     Route: 058
     Dates: start: 20200227

REACTIONS (2)
  - Mechanical ventilation [Not Recovered/Not Resolved]
  - Product dose omission issue [Not Recovered/Not Resolved]
